FAERS Safety Report 22752083 (Version 10)
Quarter: 2025Q3

REPORT INFORMATION
  Report Type: Report from Study
  Country: US (occurrence: US)
  Receive Date: 20230726
  Receipt Date: 20250710
  Transmission Date: 20251021
  Serious: Yes (Hospitalization)
  Sender: PFIZER
  Company Number: US-PFIZER INC-PV202300090230

PATIENT
  Age: 86 Year
  Sex: Female

DRUGS (16)
  1. VYNDAMAX [Suspect]
     Active Substance: TAFAMIDIS
     Indication: Amyloidosis
     Dosage: TAKE 1 CAPSULE (61MG TOTAL) BY MOUTH DAILY
     Route: 048
     Dates: start: 20221111
  2. VYNDAMAX [Suspect]
     Active Substance: TAFAMIDIS
     Dosage: TAKE ONE 61 MG CAPSULE BY MOUTH DAILY
     Route: 048
  3. ATORVASTATIN [Concomitant]
     Active Substance: ATORVASTATIN
  4. BUSPIRONE [Concomitant]
     Active Substance: BUSPIRONE HYDROCHLORIDE
  5. ELIQUIS [Concomitant]
     Active Substance: APIXABAN
  6. FAMOTIDINE [Concomitant]
     Active Substance: FAMOTIDINE
  7. IRON [Concomitant]
     Active Substance: IRON
  8. LISINOPRIL [Concomitant]
     Active Substance: LISINOPRIL
  9. MIRTAZAPINE [Concomitant]
     Active Substance: MIRTAZAPINE
  10. VITAMINS [Concomitant]
     Active Substance: VITAMINS
  11. ONE A DAY WOMEN^S [ASCORBIC ACID;BETACAROTENE;CALCIUM CARBONATE;CALCIU [Concomitant]
  12. QUETIAPINE [Concomitant]
     Active Substance: QUETIAPINE
  13. SERTRALINE [Concomitant]
     Active Substance: SERTRALINE HYDROCHLORIDE
  14. SPIRONOLACTONE [Concomitant]
     Active Substance: SPIRONOLACTONE
  15. TRAMADOL [Concomitant]
     Active Substance: TRAMADOL
  16. TYLENOL 8HR [Concomitant]
     Active Substance: ACETAMINOPHEN

REACTIONS (10)
  - Pharyngeal swelling [Unknown]
  - Oropharyngeal pain [Unknown]
  - Dysphagia [Unknown]
  - Pyrexia [Not Recovered/Not Resolved]
  - Fatigue [Not Recovered/Not Resolved]
  - Tooth disorder [Not Recovered/Not Resolved]
  - Asthenia [Not Recovered/Not Resolved]
  - Depression [Not Recovered/Not Resolved]
  - Dizziness [Unknown]
  - Product dose omission issue [Unknown]
